FAERS Safety Report 5218512-X (Version None)
Quarter: 2007Q1

REPORT INFORMATION
  Report Type: 
  Country: None (occurrence: None)
  Receive Date: 20070122
  Receipt Date: 20070106
  Transmission Date: 20070707
  Serious: Yes (Hospitalization, Other)
  Sender: FDA-Public Use
  Company Number: PAR_1224_2007

PATIENT
  Age: 83 Year
  Sex: Female

DRUGS (7)
  1. IBUPROFEN [Suspect]
     Dosage: DF
  2. MOXIFLOXACIN I.V. VERSUS ERTAPENEM I.V. [Suspect]
     Indication: CHOLECYSTITIS
     Dosage: DF IV
     Route: 042
     Dates: start: 20070104
  3. MOXIFLOXACIN I.V. VERSUS ERTAPENEM I.V. [Suspect]
     Indication: PERITONITIS
     Dosage: DF IV
     Route: 042
     Dates: start: 20070104
  4. SODIUM [Concomitant]
  5. MORPHINE [Concomitant]
  6. RANITIDINE [Concomitant]
  7. HEPARIN [Concomitant]

REACTIONS (3)
  - BILIARY TRACT DISORDER [None]
  - DUODENAL ULCER PERFORATION [None]
  - SURGICAL PROCEDURE REPEATED [None]
